FAERS Safety Report 6958120-3 (Version None)
Quarter: 2010Q3

REPORT INFORMATION
  Report Type: 
  Country: None (occurrence: None)
  Receive Date: 20100831
  Receipt Date: 20100817
  Transmission Date: 20110219
  Serious: Yes (Hospitalization)
  Sender: FDA-Public Use
  Company Number: TR-ELI_LILLY_AND_COMPANY-TR201003004315

PATIENT
  Sex: Male
  Weight: 108 kg

DRUGS (4)
  1. GEMCITABINE HCL [Suspect]
     Indication: NON-SMALL CELL LUNG CANCER
     Dosage: 1250 MG/M2, ON DAYS 1 + 8 EVERY 3 WEEKS
     Route: 042
     Dates: start: 20100112, end: 20100302
  2. CETUXIMAB [Suspect]
     Indication: NON-SMALL CELL LUNG CANCER
     Dosage: 400 MG/M2, INITIAL DOSE ONLY
     Route: 042
  3. CETUXIMAB [Suspect]
     Dosage: 250 MG/M2, ONCE WEEKLY (1/W)
     Route: 042
     Dates: start: 20100112, end: 20100302
  4. CISPLATIN [Suspect]
     Indication: NON-SMALL CELL LUNG CANCER
     Dosage: 150 MG/M2, DAY 1 EVERY 3 WEEKS
     Route: 042
     Dates: start: 20100112, end: 20100302

REACTIONS (1)
  - PERIPHERAL ISCHAEMIA [None]
